FAERS Safety Report 14197680 (Version 1)
Quarter: 2017Q4

REPORT INFORMATION
  Report Type: Spontaneous
  Country: US (occurrence: US)
  Receive Date: 20171116
  Receipt Date: 20171116
  Transmission Date: 20180321
  Serious: No
  Sender: FDA-Public Use
  Company Number: US-BAUSCH-BL-2017-015813

PATIENT
  Age: 83 Year
  Sex: Female

DRUGS (5)
  1. PLAVIX [Suspect]
     Active Substance: CLOPIDOGREL BISULFATE
     Indication: PRODUCT USED FOR UNKNOWN INDICATION
     Route: 065
     Dates: start: 201704
  2. NIFEDICAL XL [Suspect]
     Active Substance: NIFEDIPINE
     Indication: VASCULAR CALCIFICATION
     Route: 065
     Dates: start: 201004
  3. NIFEDIPINE. [Suspect]
     Active Substance: NIFEDIPINE
     Indication: VASCULAR CALCIFICATION
     Route: 065
     Dates: start: 2017, end: 201704
  4. CRESTOR [Suspect]
     Active Substance: ROSUVASTATIN CALCIUM
     Indication: PRODUCT USED FOR UNKNOWN INDICATION
     Route: 065
     Dates: start: 201704
  5. NIFEDICAL XL [Suspect]
     Active Substance: NIFEDIPINE
     Route: 065
     Dates: start: 201704

REACTIONS (8)
  - Abdominal discomfort [Unknown]
  - Erythema [Unknown]
  - Medication residue present [Unknown]
  - Vein disorder [Unknown]
  - Constipation [Unknown]
  - Dizziness [Unknown]
  - Pruritus [Unknown]
  - Dyspnoea [Unknown]
